FAERS Safety Report 8182190-0 (Version None)
Quarter: 2012Q1

REPORT INFORMATION
  Report Type: 
  Country: None (occurrence: None)
  Receive Date: 20120302
  Receipt Date: 20120217
  Transmission Date: 20120608
  Serious: Yes (Hospitalization)
  Sender: FDA-Public Use
  Company Number: BE-AMGEN-BELCT2012006041

PATIENT
  Age: 60 Year
  Sex: Male
  Weight: 90 kg

DRUGS (9)
  1. ETANERCEPT [Suspect]
     Indication: RHEUMATOID ARTHRITIS
     Dosage: 50 MG, WEEKLY
     Route: 058
     Dates: start: 20100316
  2. ACTOS [Concomitant]
     Dosage: 15 MG, 1X/DAY
     Route: 048
  3. FOLAVIT [Concomitant]
     Dosage: 8 MG, WEEKLY
  4. METHOTREXATE SODIUM [Concomitant]
     Indication: RHEUMATOID ARTHRITIS
     Dosage: 15 MG, WEEKLY
     Route: 048
  5. CRESTOR [Concomitant]
     Dosage: 20 MG, 1X/DAY
  6. BISOPROLOL FUMARATE [Concomitant]
     Dosage: 5 MG, 1X/DAY
     Route: 048
  7. FERROGRADUMET [Concomitant]
     Dosage: ONCE IN TWO DAYS
  8. OMEPRAZOLE [Concomitant]
     Dosage: 10 MG, 1X/DAY
     Route: 048
  9. GLUCOPHAGE [Concomitant]
     Dosage: 850 MG, 3X/DAY
     Route: 048

REACTIONS (1)
  - PNEUMONITIS [None]
